FAERS Safety Report 13755969 (Version 3)
Quarter: 2017Q3

REPORT INFORMATION
  Report Type: Report from Study
  Country: US (occurrence: US)
  Receive Date: 20170714
  Receipt Date: 20170929
  Transmission Date: 20171127
  Serious: Yes (Hospitalization, Other)
  Sender: FDA-Public Use
  Company Number: US-AMGEN-USASL2017104415

PATIENT
  Age: 70 Year
  Sex: Male

DRUGS (1)
  1. ENBREL [Suspect]
     Active Substance: ETANERCEPT
     Indication: RHEUMATOID ARTHRITIS
     Dosage: 25 MG, UNK
     Route: 065
     Dates: start: 2004

REACTIONS (6)
  - Underdose [Unknown]
  - Large intestine perforation [Unknown]
  - Accidental exposure to product [Unknown]
  - Scar [Unknown]
  - Gallbladder perforation [Unknown]
  - Incisional hernia [Unknown]

NARRATIVE: CASE EVENT DATE: 2017
